FAERS Safety Report 26015046 (Version 3)
Quarter: 2025Q4

REPORT INFORMATION
  Report Type: Spontaneous
  Country: JP (occurrence: JP)
  Receive Date: 20251109
  Receipt Date: 20251202
  Transmission Date: 20260117
  Serious: Yes (Death, Hospitalization, Other)
  Sender: KYOWA
  Company Number: JP-KYOWAKIRIN-2025KK021525

PATIENT

DRUGS (1)
  1. POTELIGEO [Suspect]
     Active Substance: MOGAMULIZUMAB-KPKC
     Indication: Cutaneous T-cell lymphoma recurrent
     Dosage: UNK
     Route: 041

REACTIONS (8)
  - Cytomegalovirus enterocolitis [Fatal]
  - Gastrointestinal perforation [Unknown]
  - Tumour invasion [Unknown]
  - Malnutrition [Unknown]
  - Anaemia [Unknown]
  - Mobility decreased [Fatal]
  - Melaena [Fatal]
  - Sepsis [Fatal]
